FAERS Safety Report 8736905 (Version 3)
Quarter: 2012Q4

REPORT INFORMATION
  Report Type: Report from Study
  Country: US (occurrence: US)
  Receive Date: 20120822
  Receipt Date: 20121214
  Transmission Date: 20130627
  Serious: Yes (Other)
  Sender: FDA-Public Use
  Company Number: US-ABBOTT-12P-163-0967988-00

PATIENT
  Age: 49 None
  Sex: Female
  Weight: 79 kg

DRUGS (11)
  1. HUMIRA 40 MG/0.8 ML PEN [Suspect]
     Indication: CROHN^S DISEASE
     Dates: start: 2007, end: 200809
  2. HUMIRA 40 MG/0.8 ML PEN [Suspect]
     Dates: start: 200809, end: 2009
  3. HUMIRA 40 MG/0.8 ML PEN [Suspect]
     Dates: start: 2009
  4. PENTASA [Concomitant]
     Indication: PRODUCT USED FOR UNKNOWN INDICATION
  5. PREVACID [Concomitant]
     Indication: PRODUCT USED FOR UNKNOWN INDICATION
  6. B 12 [Concomitant]
     Indication: PRODUCT USED FOR UNKNOWN INDICATION
  7. CIMZIA [Concomitant]
     Indication: PRODUCT USED FOR UNKNOWN INDICATION
     Dates: start: 200807
  8. FOLIC ACID [Concomitant]
     Indication: PRODUCT USED FOR UNKNOWN INDICATION
  9. SINGULAIR [Concomitant]
     Indication: PRODUCT USED FOR UNKNOWN INDICATION
  10. PREDNISONE [Concomitant]
     Indication: PRODUCT USED FOR UNKNOWN INDICATION
  11. NEXIUM [Concomitant]
     Indication: GASTROOESOPHAGEAL REFLUX DISEASE

REACTIONS (21)
  - Menorrhagia [Unknown]
  - Haemorrhagic anaemia [Unknown]
  - Small intestinal stenosis [Unknown]
  - Drug ineffective [Recovered/Resolved]
  - Muscular weakness [Unknown]
  - Demyelination [Unknown]
  - Dysphagia [Unknown]
  - Dyspepsia [Unknown]
  - Back pain [Unknown]
  - Post procedural infection [Unknown]
  - Abdominal distension [Unknown]
  - Chills [Unknown]
  - Abdominal discomfort [Unknown]
  - Flatulence [Unknown]
  - Hypoaesthesia [Unknown]
  - Abdominal pain [Unknown]
  - Small intestinal obstruction [Recovered/Resolved]
  - Arthralgia [Unknown]
  - Hiatus hernia [Unknown]
  - Intervertebral disc protrusion [Unknown]
  - Fibrosis [Unknown]
